FAERS Safety Report 23362099 (Version 1)
Quarter: 2024Q1

REPORT INFORMATION
  Report Type: Spontaneous
  Country: US (occurrence: None)
  Receive Date: 20240102
  Receipt Date: 20240102
  Transmission Date: 20240410
  Serious: No
  Sender: FDA-Public Use
  Company Number: None

PATIENT
  Age: 57 Year
  Sex: Female
  Weight: 72 kg

DRUGS (16)
  1. SUCRALFATE [Suspect]
     Active Substance: SUCRALFATE
     Indication: Eosinophilic oesophagitis
     Dosage: FREQUENCY : 4 TIMES A DAY;?
     Route: 048
  2. LEVOTHYROXINE [Concomitant]
     Active Substance: LEVOTHYROXINE
  3. DULOXETINE [Concomitant]
     Active Substance: DULOXETINE
  4. CLONAZEPAM [Concomitant]
     Active Substance: CLONAZEPAM
  5. PAXIL [Concomitant]
     Active Substance: PAROXETINE HYDROCHLORIDE
  6. PROTONIX [Concomitant]
     Active Substance: PANTOPRAZOLE SODIUM
  7. WELCHOL [Concomitant]
     Active Substance: COLESEVELAM HYDROCHLORIDE
  8. SEROQUEL [Concomitant]
     Active Substance: QUETIAPINE FUMARATE
  9. PROMETHAZINE [Concomitant]
     Active Substance: PROMETHAZINE HYDROCHLORIDE
  10. OZEMPIC [Concomitant]
     Active Substance: SEMAGLUTIDE
  11. LEVALBUTEROL [Concomitant]
     Active Substance: LEVALBUTEROL
  12. DEVICE [Concomitant]
     Active Substance: DEVICE
  13. TYLENOL [Concomitant]
     Active Substance: ACETAMINOPHEN
  14. DIMENHYDRINATE [Concomitant]
     Active Substance: DIMENHYDRINATE
  15. melatonin gummies [Concomitant]
  16. CHLORPHENIRAMINE MALEATE [Concomitant]
     Active Substance: CHLORPHENIRAMINE MALEATE

REACTIONS (6)
  - Dry mouth [None]
  - Burn oral cavity [None]
  - Pain [None]
  - Dysphonia [None]
  - Oesophageal pain [None]
  - Abdominal pain upper [None]
